FAERS Safety Report 24201617 (Version 1)
Quarter: 2024Q3

REPORT INFORMATION
  Report Type: Spontaneous
  Country: US (occurrence: None)
  Receive Date: 20240811
  Receipt Date: 20240811
  Transmission Date: 20241017
  Serious: No
  Sender: Public
  Company Number: None

PATIENT
  Age: 41 Year
  Sex: Female
  Weight: 53.1 kg

DRUGS (18)
  1. XIIDRA [Suspect]
     Active Substance: LIFITEGRAST
     Indication: Dry eye
     Dosage: 1 DROPP TWICE A DAY OPHTHALMIC
     Route: 047
     Dates: start: 20240709, end: 20240726
  2. XIIDRA [Suspect]
     Active Substance: LIFITEGRAST
     Indication: Eye colour change
  3. bionic prosthetic hand [Concomitant]
  4. LYRICA [Concomitant]
     Active Substance: PREGABALIN
  5. ZANAFLEX [Concomitant]
     Active Substance: TIZANIDINE HYDROCHLORIDE
  6. LAMOTRIGINE [Concomitant]
     Active Substance: LAMOTRIGINE
  7. ESCITALOPRAM [Concomitant]
     Active Substance: ESCITALOPRAM OXALATE
  8. BUPROPION [Concomitant]
     Active Substance: BUPROPION
  9. adderall extended release [Concomitant]
  10. aderall instant release [Concomitant]
  11. MINOCYCLINE [Concomitant]
     Active Substance: MINOCYCLINE HYDROCHLORIDE
  12. XYWAV [Concomitant]
     Active Substance: CALCIUM OXYBATE\MAGNESIUM OXYBATE\POTASSIUM OXYBATE\SODIUM OXYBATE
  13. PROPANOL (PROPRANOLOL HYDROCHLORIDE) [Suspect]
     Active Substance: PROPRANOLOL HYDROCHLORIDE
  14. IRON [Concomitant]
     Active Substance: IRON
  15. CALCIUM WITH D3 [Concomitant]
  16. LUMIFY [Concomitant]
     Active Substance: BRIMONIDINE TARTRATE
  17. FOLIC ACID [Concomitant]
     Active Substance: FOLIC ACID
  18. caffeine supplement [Concomitant]

REACTIONS (8)
  - Therapeutic product effect decreased [None]
  - Eye colour change [None]
  - Asthenopia [None]
  - Lacrimation increased [None]
  - Sputum discoloured [None]
  - Dehydration [None]
  - Dacryostenosis acquired [None]
  - Therapy cessation [None]

NARRATIVE: CASE EVENT DATE: 20240724
